FAERS Safety Report 9551875 (Version 2)
Quarter: 2014Q1

REPORT INFORMATION
  Report Type: Spontaneous
  Country: US (occurrence: None)
  Receive Date: 20130923
  Receipt Date: 20140221
  Transmission Date: 20141002
  Serious: No
  Sender: FDA-Public Use
  Company Number: 2013-US-000651

PATIENT
  Age: 34 Year
  Sex: Male
  Weight: 72.6 kg

DRUGS (5)
  1. XYREM [Suspect]
     Indication: NARCOLEPSY
     Route: 048
     Dates: start: 20130225
  2. XYREM [Suspect]
     Indication: CATAPLEXY
     Route: 048
     Dates: start: 20130225
  3. ADDERALL (AMFETAMINE ASPARTATE, AMFETAMINE SULFATE, DEXAMAFETAMINE SACCHARATE, DEXAFETAMINE SULFATE) [Concomitant]
  4. LUNESTA [Concomitant]
  5. NUVIGIL (ARMODAFINIL) [Concomitant]

REACTIONS (2)
  - Abdominal hernia repair [None]
  - Somnolence [None]
